FAERS Safety Report 20643564 (Version 2)
Quarter: 2022Q2

REPORT INFORMATION
  Report Type: Spontaneous
  Country: US (occurrence: US)
  Receive Date: 20220328
  Receipt Date: 20220516
  Transmission Date: 20220721
  Serious: Yes (Other)
  Sender: FDA-Public Use
  Company Number: US-PFIZER INC-202200419913

PATIENT
  Age: 57 Year
  Sex: Female

DRUGS (1)
  1. IBRANCE [Suspect]
     Active Substance: PALBOCICLIB
     Indication: Breast cancer female
     Dosage: 75 MG

REACTIONS (7)
  - Optic nerve injury [Unknown]
  - Neoplasm progression [Unknown]
  - Psychiatric symptom [Unknown]
  - Back injury [Unknown]
  - Fatigue [Unknown]
  - Motion sickness [Unknown]
  - Ocular discomfort [Unknown]
